FAERS Safety Report 6140773-3 (Version None)
Quarter: 2009Q2

REPORT INFORMATION
  Report Type: 
  Country: None (occurrence: None)
  Receive Date: 20090402
  Receipt Date: 20090322
  Transmission Date: 20091009
  Serious: Yes (Death)
  Sender: FDA-Public Use
  Company Number: EG-PFIZER INC-2009187045

PATIENT

DRUGS (16)
  1. VFEND [Suspect]
     Indication: CANDIDURIA
     Dosage: 200 MG, 2X/DAY
     Route: 048
     Dates: start: 20090221, end: 20090225
  2. ZOVIRAX [Concomitant]
  3. SULPERAZON [Concomitant]
  4. ZITHROMAX [Concomitant]
  5. TIENAM [Concomitant]
  6. TARGOCID [Concomitant]
  7. LASIX [Concomitant]
  8. CLEXANE [Concomitant]
  9. SOLU-MEDROL [Concomitant]
  10. DECADRON [Concomitant]
  11. CORDARONE [Concomitant]
  12. ZESTRIL [Concomitant]
  13. ISOPTIN [Concomitant]
  14. LANOXIN [Concomitant]
  15. DOPRAM [Concomitant]
  16. AMINOPHYLLINE [Concomitant]

REACTIONS (3)
  - ATRIAL FIBRILLATION [None]
  - PULMONARY OEDEMA [None]
  - TRACHEO-OESOPHAGEAL FISTULA [None]
